FAERS Safety Report 5259326-4 (Version None)
Quarter: 2007Q1

REPORT INFORMATION
  Report Type: 
  Country: None (occurrence: None)
  Receive Date: 20070305
  Receipt Date: 20070220
  Transmission Date: 20070707
  Serious: Yes (Hospitalization)
  Sender: FDA-Public Use
  Company Number: OSCN-NO-0701S-0036

PATIENT
  Age: 58 Year
  Sex: 0

DRUGS (1)
  1. OMNISCAN [Suspect]
     Dosage: SINGLE DOSE, I.V.
     Route: 042
     Dates: start: 20031019, end: 20031019

REACTIONS (1)
  - NEPHROGENIC FIBROSING DERMOPATHY [None]
